FAERS Safety Report 4366214-4 (Version None)
Quarter: 2004Q2

REPORT INFORMATION
  Report Type: 
  Country: None (occurrence: None)
  Receive Date: 20040527
  Receipt Date: 20040309
  Transmission Date: 20050107
  Serious: No
  Sender: FDA-Public Use
  Company Number: US-BRISTOL-MYERS SQUIBB COMPANY-12528899

PATIENT
  Age: 64 Year
  Sex: Male

DRUGS (7)
  1. DEFINITY [Suspect]
     Indication: ECHOCARDIOGRAM
     Dosage: RECEIVED 2CC OF 1.3 CC DEFINITY MIXED WITH 8.7 CC SALINE
     Route: 040
     Dates: start: 20030306
  2. NITRO PASTE [Concomitant]
  3. ASPIRIN [Concomitant]
  4. LASIX [Concomitant]
  5. ENALAPRIL [Concomitant]
  6. PROTONIX [Concomitant]
  7. IMDUR [Concomitant]

REACTIONS (1)
  - BACK PAIN [None]
